FAERS Safety Report 16437851 (Version 1)
Quarter: 2019Q2

REPORT INFORMATION
  Report Type: Spontaneous
  Country: JP (occurrence: JP)
  Receive Date: 20190616
  Receipt Date: 20190616
  Transmission Date: 20190711
  Serious: Yes (Other)
  Sender: FDA-Public Use
  Company Number: JP-AMGEN-JPNSP2019075365

PATIENT
  Age: 77 Year
  Sex: Female

DRUGS (2)
  1. LIXIANA [Concomitant]
     Active Substance: EDOXABAN TOSYLATE
     Indication: ATRIAL FIBRILLATION
     Dosage: UNK
  2. EVENITY [Suspect]
     Active Substance: ROMOSOZUMAB-AQQG
     Indication: PRODUCT USED FOR UNKNOWN INDICATION
     Dosage: UNK
     Route: 058
     Dates: start: 201904, end: 201906

REACTIONS (8)
  - Seizure [Unknown]
  - Hypoaesthesia oral [Unknown]
  - Feeling abnormal [Unknown]
  - Headache [Unknown]
  - Muscle spasms [Unknown]
  - Physical deconditioning [Unknown]
  - Dizziness [Unknown]
  - Paraesthesia oral [Unknown]

NARRATIVE: CASE EVENT DATE: 2019
